FAERS Safety Report 4434792-2 (Version None)
Quarter: 2004Q3

REPORT INFORMATION
  Report Type: 
  Country: None (occurrence: None)
  Receive Date: 20040726
  Receipt Date: 20040520
  Transmission Date: 20050211
  Serious: No
  Sender: FDA-Public Use
  Company Number: USA040567436

PATIENT
  Age: 73 Year
  Sex: Female
  Weight: 64 kg

DRUGS (1)
  1. FORTEO [Suspect]
     Indication: SPINAL DISORDER
     Dosage: 20 UG/ 1 DAY
     Dates: start: 20040511

REACTIONS (4)
  - ARTHRALGIA [None]
  - FEELING ABNORMAL [None]
  - MYALGIA [None]
  - PYREXIA [None]
